FAERS Safety Report 18037457 (Version 1)
Quarter: 2020Q3

REPORT INFORMATION
  Report Type: Spontaneous
  Country: US (occurrence: US)
  Receive Date: 20200717
  Receipt Date: 20200717
  Transmission Date: 20201103
  Serious: Yes (Death, Other)
  Sender: FDA-Public Use
  Company Number: US-SA-2020SA185058

PATIENT

DRUGS (28)
  1. SUBOXONE [Concomitant]
     Active Substance: BUPRENORPHINE HYDROCHLORIDE\NALOXONE HYDROCHLORIDE
  2. ENOXAPARIN [Concomitant]
     Active Substance: ENOXAPARIN
  3. PAROXETINE. [Concomitant]
     Active Substance: PAROXETINE
  4. AMITRIPTYLINE [Concomitant]
     Active Substance: AMITRIPTYLINE
  5. CEREZYME [Suspect]
     Active Substance: IMIGLUCERASE
     Indication: LIPIDOSIS
     Dosage: 4000 IU, QOW
     Route: 042
     Dates: start: 20141223
  6. EPINEPHRINE. [Concomitant]
     Active Substance: EPINEPHRINE
  7. LOXAPIN [Concomitant]
  8. GLIMEPIRIDE. [Concomitant]
     Active Substance: GLIMEPIRIDE
  9. AMBIEN [Concomitant]
     Active Substance: ZOLPIDEM TARTRATE
  10. METHIONINE [Concomitant]
     Active Substance: METHIONINE
  11. DIPHENHYDRAMINE. [Concomitant]
     Active Substance: DIPHENHYDRAMINE
  12. TRIAMCINOLONE [Concomitant]
     Active Substance: TRIAMCINOLONE
  13. METFORMIN [Concomitant]
     Active Substance: METFORMIN HYDROCHLORIDE
  14. STERILE WATER [Concomitant]
     Active Substance: WATER
  15. REMERON [Concomitant]
     Active Substance: MIRTAZAPINE
  16. NOVOLOG [Concomitant]
     Active Substance: INSULIN ASPART
  17. SEROQUEL [Concomitant]
     Active Substance: QUETIAPINE FUMARATE
  18. TRAZODONE [Concomitant]
     Active Substance: TRAZODONE HYDROCHLORIDE
  19. NORMAL SALINE [Concomitant]
     Active Substance: SODIUM CHLORIDE
  20. IBUPROFEN. [Concomitant]
     Active Substance: IBUPROFEN
  21. LOVASTATIN. [Concomitant]
     Active Substance: LOVASTATIN
  22. SODIUM CHLORIDE. [Concomitant]
     Active Substance: SODIUM CHLORIDE
  23. ZYPREXA [Concomitant]
     Active Substance: OLANZAPINE
  24. LANTUS [Concomitant]
     Active Substance: INSULIN GLARGINE
  25. BENZTROPINE [BENZATROPINE] [Concomitant]
     Active Substance: BENZTROPINE
  26. CEREZYME [Suspect]
     Active Substance: IMIGLUCERASE
     Indication: FABRY^S DISEASE
  27. LISINOPRIL. [Concomitant]
     Active Substance: LISINOPRIL
  28. BUTALBITAL [Concomitant]
     Active Substance: BUTALBITAL

REACTIONS (2)
  - Death [Fatal]
  - Product use in unapproved indication [Unknown]

NARRATIVE: CASE EVENT DATE: 20200712
